FAERS Safety Report 5717491-6 (Version None)
Quarter: 2008Q2

REPORT INFORMATION
  Report Type: 
  Country: None (occurrence: None)
  Receive Date: 20080421
  Receipt Date: 20071213
  Transmission Date: 20081010
  Serious: Yes (Life-Threatening)
  Sender: FDA-Public Use
  Company Number: WAES 0712USA05556

PATIENT
  Age: 58 Year
  Sex: Female

DRUGS (8)
  1. SINGULAIR [Suspect]
     Indication: RHINITIS ALLERGIC
     Dosage: 10 MG/DAILY/PO
     Route: 048
     Dates: start: 20071001, end: 20071211
  2. ASPEGIC 325 [Suspect]
     Dosage: 650 MG/1X/UNK
     Route: 048
     Dates: start: 20071210
  3. ACTONEL [Concomitant]
  4. XYZAL [Concomitant]
  5. ZANTAC [Concomitant]
  6. PREDNISONE TAB [Concomitant]
  7. MULTI-VITAMINS [Concomitant]
  8. ASPIRIN [Suspect]
     Dosage: 240 MG/ 1X/ PO
     Route: 048
     Dates: start: 20071210

REACTIONS (4)
  - ARTHRALGIA [None]
  - MYALGIA [None]
  - SWELLING FACE [None]
  - SWOLLEN TONGUE [None]
